FAERS Safety Report 11016635 (Version 2)
Quarter: 2015Q2

REPORT INFORMATION
  Report Type: Spontaneous
  Country: US (occurrence: US)
  Receive Date: 20150412
  Receipt Date: 20150525
  Transmission Date: 20150821
  Serious: No
  Sender: FDA-Public Use
  Company Number: US-JNJFOC-20121200992

PATIENT
  Sex: Female

DRUGS (2)
  1. TELAPREVIR [Interacting]
     Active Substance: TELAPREVIR
     Indication: PRODUCT USED FOR UNKNOWN INDICATION
     Dosage: IN THE MORNING EVERY DAY WITHIN 60 MINUTES AFTER BREAKFAST
     Route: 048
  2. MODICON [Suspect]
     Active Substance: ETHINYL ESTRADIOL\NORETHINDRONE
     Indication: PRODUCT USED FOR UNKNOWN INDICATION
     Dosage: 0.5 MG NORETHINDRONE +0.035 MG ETHINYLESTRADIOL IN THE MORNING EVERY DAY WITHIN 60 MINS
     Route: 048

REACTIONS (7)
  - Menstruation irregular [Unknown]
  - Drug interaction [Unknown]
  - Fatigue [Unknown]
  - Nausea [Unknown]
  - Diarrhoea [Unknown]
  - Headache [Unknown]
  - Dizziness [Unknown]
